FAERS Safety Report 8088442-7 (Version None)
Quarter: 2012Q1

REPORT INFORMATION
  Report Type: 
  Country: None (occurrence: None)
  Receive Date: 20120128
  Receipt Date: 20110601
  Transmission Date: 20120608
  Serious: No
  Sender: FDA-Public Use
  Company Number: US-ABBOTT-11P-163-0730227-00

PATIENT
  Sex: Female
  Weight: 86.26 kg

DRUGS (9)
  1. HUMIRA [Suspect]
     Dates: start: 20110503
  2. METHOTREXATE [Concomitant]
     Indication: RHEUMATOID ARTHRITIS
  3. HUMIRA [Suspect]
     Indication: RHEUMATOID ARTHRITIS
     Dates: start: 20080101, end: 20080101
  4. IBUPROFEN (ADVIL) [Concomitant]
     Indication: PAIN
  5. CLARITIN [Concomitant]
     Indication: SINUS CONGESTION
  6. ALBUTEROL [Concomitant]
     Indication: ASTHMA
  7. FOLIC ACID [Concomitant]
     Indication: VITAMIN SUPPLEMENTATION
  8. PREDNISONE TAB [Concomitant]
     Indication: RHEUMATOID ARTHRITIS
  9. DIOVAN [Concomitant]
     Indication: HYPERTENSION

REACTIONS (3)
  - SINUSITIS [None]
  - EPISTAXIS [None]
  - DRUG INEFFECTIVE [None]
